FAERS Safety Report 7868275-4 (Version None)
Quarter: 2011Q4

REPORT INFORMATION
  Report Type: 
  Country: None (occurrence: None)
  Receive Date: 20111028
  Receipt Date: 20111018
  Transmission Date: 20120403
  Serious: Yes (Hospitalization)
  Sender: FDA-Public Use
  Company Number: CN-ELI_LILLY_AND_COMPANY-CN201110005119

PATIENT
  Sex: Male

DRUGS (2)
  1. CISPLATIN [Concomitant]
     Indication: NON-SMALL CELL LUNG CANCER
     Dosage: 120 MG, ON DAY 1 EVERY THREE WEEKS
     Route: 042
     Dates: start: 20110819
  2. ALIMTA [Suspect]
     Indication: NON-SMALL CELL LUNG CANCER
     Dosage: 500 MG, ON DAY 1 AND 8 EVERY THREE WEEKS
     Route: 042
     Dates: start: 20110819, end: 20110923

REACTIONS (8)
  - HYPERNATRAEMIA [None]
  - DECREASED APPETITE [None]
  - LUNG INFECTION [None]
  - LISTLESS [None]
  - RENAL FAILURE [None]
  - BONE MARROW FAILURE [None]
  - ASTHENIA [None]
  - ELECTROLYTE IMBALANCE [None]
